FAERS Safety Report 6171749-8 (Version None)
Quarter: 2009Q2

REPORT INFORMATION
  Report Type: 
  Country: None (occurrence: None)
  Receive Date: 20090429
  Receipt Date: 20090424
  Transmission Date: 20091009
  Serious: Yes (Death, Disabling)
  Sender: FDA-Public Use
  Company Number: PHHO2003KR14757

PATIENT
  Sex: Male
  Weight: 49 kg

DRUGS (5)
  1. STI571/CGP57148B T35717+CAPS [Suspect]
     Indication: GASTROINTESTINAL STROMAL TUMOUR
     Dosage: 400 MG, QD
     Route: 048
     Dates: start: 20030220
  2. STI571/CGP57148B T35717+CAPS [Suspect]
     Dosage: 600 MG, QD
     Route: 048
  3. STI571/CGP57148B T35717+CAPS [Suspect]
     Dosage: 400 MG, QD
     Route: 048
     Dates: start: 20030905
  4. STI571/CGP57148B T35717+CAPS [Suspect]
     Dosage: 300 MG, QD
     Route: 048
     Dates: start: 20031008, end: 20031029
  5. IMATINIB MESILATE [Concomitant]

REACTIONS (11)
  - ASPHYXIA [None]
  - ASTHENIA [None]
  - DYSPNOEA [None]
  - GENERALISED OEDEMA [None]
  - HAEMOPTYSIS [None]
  - MALIGNANT NEOPLASM PROGRESSION [None]
  - NAUSEA [None]
  - PANCREATIC NEOPLASM [None]
  - PLEURAL EFFUSION [None]
  - PNEUMONIA ASPIRATION [None]
  - VOMITING [None]
